FAERS Safety Report 5103652-6 (Version None)
Quarter: 2006Q3

REPORT INFORMATION
  Report Type: 
  Country: None (occurrence: None)
  Receive Date: 20060908
  Receipt Date: 20060830
  Transmission Date: 20061208
  Serious: Yes (Hospitalization, Other)
  Sender: FDA-Public Use
  Company Number: 2006066079

PATIENT
  Age: 42 Year
  Sex: Male
  Weight: 104.3273 kg

DRUGS (1)
  1. BEXTRA [Suspect]
     Indication: ARTHRITIS
     Dosage: 20 MG (20 MG, 1 IN 1 D),
     Dates: start: 20020701

REACTIONS (2)
  - CEREBROVASCULAR ACCIDENT [None]
  - PAIN [None]
